FAERS Safety Report 24619193 (Version 1)
Quarter: 2024Q4

REPORT INFORMATION
  Report Type: Spontaneous
  Country: CH (occurrence: CH)
  Receive Date: 20241114
  Receipt Date: 20241114
  Transmission Date: 20250115
  Serious: Yes (Hospitalization, Other)
  Sender: TEVA
  Company Number: None

PATIENT
  Age: 72 Year
  Sex: Female
  Weight: 75.3 kg

DRUGS (17)
  1. ESOMEPRAZOLE [Suspect]
     Active Substance: ESOMEPRAZOLE
     Indication: Product used for unknown indication
     Dosage: ESOMEPRAZOLE MEPHA 40 MG 1-0-1-0
     Route: 048
  2. BRICANYL [Concomitant]
     Active Substance: TERBUTALINE SULFATE
     Indication: Product used for unknown indication
     Dosage: TIME INTERVAL: AS NECESSARY: TURBOHALER 0. 5 MG AS REQUIRED IN THE MORNING AND EVENING, 2 PUMPS I...
     Route: 055
  3. LISINOPRIL [Suspect]
     Active Substance: LISINOPRIL
     Indication: Product used for unknown indication
     Dosage: LISINOPRIL MEPHA 5 MG ?-0-0-0
     Route: 048
  4. NITROLINGUAL [Concomitant]
     Active Substance: NITROGLYCERIN
     Indication: Product used for unknown indication
     Dosage: TIME INTERVAL: AS NECESSARY: 2 STROKES AS REQUIRED
     Route: 060
  5. ASPIRIN [Suspect]
     Active Substance: ASPIRIN
     Indication: Product used for unknown indication
     Dosage: 100 MG 1-0-0-0; 1 SEPARATED DOSES
     Route: 048
  6. DIPROPHOS [Concomitant]
     Active Substance: BETAMETHASONE DIPROPIONATE\BETAMETHASONE SODIUM PHOSPHATE
     Indication: Product used for unknown indication
     Dosage: TIME INTERVAL: TOTAL: SINGLE NEAR-FACET INFILTRATION L4/5
     Route: 050
     Dates: start: 20240228
  7. LORMETAZEPAM [Concomitant]
     Active Substance: LORMETAZEPAM
     Indication: Product used for unknown indication
     Dosage: TIME INTERVAL: AS NECESSARY: 1 MG AS REQUIRED
     Route: 048
  8. DAFALGAN [Concomitant]
     Active Substance: ACETAMINOPHEN
     Indication: Product used for unknown indication
     Dosage: TIME INTERVAL: AS NECESSARY: 1 G IN RESERVE 3X DAILY FOR PAIN / FEVER
     Route: 048
  9. PREDNISOLONE [Concomitant]
     Active Substance: PREDNISOLONE
     Indication: Product used for unknown indication
     Dosage: TIME INTERVAL: AS NECESSARY: 50 MG ? TABLET AS REQUIRED
     Route: 048
  10. PRAVASTATIN [Concomitant]
     Active Substance: PRAVASTATIN
     Indication: Product used for unknown indication
     Dosage: 20 MG 1-0-0-0
     Route: 048
  11. DAPAGLIFLOZIN [Suspect]
     Active Substance: DAPAGLIFLOZIN
     Indication: Product used for unknown indication
     Dosage: 1 SEPARATED DOSES 10 MG 1-0-0-0
     Route: 048
  12. BISOPROLOL MEPHA [Concomitant]
     Indication: Product used for unknown indication
     Dosage: 2.5 MG 1-0-0-0
     Route: 048
  13. VI DE 3 [Concomitant]
     Indication: Product used for unknown indication
     Dosage: 4500 IU/ML 36 DROPS IN THE MORNING
     Route: 048
  14. MAGNESIUM ASPARTATE HYDROCHLORIDE [Concomitant]
     Active Substance: MAGNESIUM ASPARTATE HYDROCHLORIDE
     Indication: Muscle spasms
     Dosage: TIME INTERVAL: AS NECESSARY: 10 MMOL AS REQUIRED, MAX. 2X/DAY 1 SACHET
     Route: 048
  15. FOLIC ACID [Concomitant]
     Active Substance: FOLIC ACID
     Indication: Product used for unknown indication
     Dosage: 5 MG 1-0-0-0
     Route: 048
  16. TORSEMIDE [Suspect]
     Active Substance: TORSEMIDE
     Indication: Product used for unknown indication
     Dosage: TORASEMIDE MEPHA 20 MG 1.5-0-0-0
     Route: 048
  17. ZOLEDRONIC ACID ANHYDROUS [Suspect]
     Active Substance: ZOLEDRONIC ACID ANHYDROUS
     Indication: Osteoporosis
     Dosage: 5 MG/100 ML 1 SEPARATED DOSES
     Route: 040
     Dates: start: 20240221

REACTIONS (1)
  - Nephritis [Recovered/Resolved with Sequelae]

NARRATIVE: CASE EVENT DATE: 20240303
